FAERS Safety Report 8613685 (Version 2)
Quarter: 2012Q4

REPORT INFORMATION
  Report Type: 
  Country: JP (occurrence: JP)
  Receive Date: 20120614
  Receipt Date: 20120904
  Transmission Date: 20130627
  Serious: Yes (Death, Hospitalization, Other)
  Sender: FDA-Public Use
  Company Number: JP-ELI_LILLY_AND_COMPANY-JP201206003351

PATIENT
  Age: 72 Year
  Sex: Male
  Weight: 52 kg

DRUGS (10)
  1. ALIMTA [Suspect]
     Indication: LUNG ADENOCARCINOMA STAGE IV
     Dosage: 700 mg, UNK
     Route: 042
     Dates: start: 20111109, end: 20120403
  2. CARBOPLATIN [Concomitant]
     Indication: LUNG ADENOCARCINOMA STAGE IV
     Dosage: 600 mg, UNK
     Route: 042
     Dates: start: 20111109, end: 20120110
  3. CARBOPLATIN [Concomitant]
     Dosage: 480 mg, UNK
     Route: 042
     Dates: start: 20120216
  4. ZOMETA [Concomitant]
     Dosage: 4 mg, UNK
     Route: 042
     Dates: start: 20120207, end: 20120313
  5. PANVITAN [Concomitant]
     Dosage: 1 g, UNK
     Route: 048
     Dates: start: 20111101, end: 20120426
  6. CALONAL [Concomitant]
     Dosage: 950 mg, UNK
     Route: 048
     Dates: start: 20120207, end: 20120413
  7. FRESMIN S [Concomitant]
     Dosage: 1 mg, UNK
     Route: 030
     Dates: start: 20111101
  8. LAC B [Concomitant]
     Indication: ENTEROCOLITIS
     Dosage: 1 g, tid
     Route: 048
     Dates: start: 20111116
  9. TAKEPRON [Concomitant]
     Indication: GASTRITIS PROPHYLAXIS
     Dosage: 15 mg, UNK
     Route: 048
     Dates: start: 20120418, end: 20120511
  10. PRIMPERAN [Concomitant]
     Indication: NAUSEA
     Dosage: 5 mg, tid
     Route: 048
     Dates: start: 20111221, end: 20120214

REACTIONS (5)
  - Interstitial lung disease [Fatal]
  - Pneumothorax [Not Recovered/Not Resolved]
  - Neutropenia [Recovering/Resolving]
  - Anaemia [Recovering/Resolving]
  - Thrombocytopenia [Recovering/Resolving]
